FAERS Safety Report 7208515-8 (Version None)
Quarter: 2011Q1

REPORT INFORMATION
  Report Type: 
  Country: None (occurrence: None)
  Receive Date: 20110104
  Receipt Date: 20100914
  Transmission Date: 20110831
  Serious: Yes (Hospitalization)
  Sender: FDA-Public Use
  Company Number: US-BAYER-201036412NA

PATIENT
  Sex: Female

DRUGS (6)
  1. EMETROL [Concomitant]
  2. NEXIUM [Concomitant]
  3. PRILOSEC [Concomitant]
  4. YAZ [Suspect]
     Indication: CONTRACEPTION
     Route: 048
     Dates: start: 20070201, end: 20080415
  5. DARVOCET-N 100 [Concomitant]
  6. PHENERGAN [Concomitant]

REACTIONS (3)
  - BILIARY DYSKINESIA [None]
  - CHOLECYSTITIS CHRONIC [None]
  - ABDOMINAL PAIN [None]
